FAERS Safety Report 5803060-6 (Version None)
Quarter: 2008Q2

REPORT INFORMATION
  Report Type: 
  Country: None (occurrence: None)
  Receive Date: 20080626
  Receipt Date: 20080411
  Transmission Date: 20081010
  Serious: Yes (Disabling)
  Sender: FDA-Public Use
  Company Number: A03200801471

PATIENT
  Age: 36 Year
  Sex: Female

DRUGS (3)
  1. AMBIEN CR [Suspect]
     Indication: INSOMNIA
     Dosage: 5 MG HS - ORAL
     Route: 048
     Dates: start: 20080201, end: 20080410
  2. AMBIEN CR [Suspect]
     Indication: SLEEP DISORDER THERAPY
     Dosage: 5 MG HS - ORAL
     Route: 048
     Dates: start: 20080201, end: 20080410
  3. VALPROATE SODIUM [Concomitant]

REACTIONS (3)
  - ANXIETY [None]
  - HYPOAESTHESIA [None]
  - MUSCLE TWITCHING [None]
